FAERS Safety Report 21876789 (Version 1)
Quarter: 2023Q1

REPORT INFORMATION
  Report Type: Spontaneous
  Country: US (occurrence: None)
  Receive Date: 20230118
  Receipt Date: 20230118
  Transmission Date: 20230417
  Serious: Yes (Hospitalization)
  Sender: FDA-Public Use
  Company Number: US-ROCHE-3264166

PATIENT
  Sex: Female

DRUGS (1)
  1. OCREVUS [Suspect]
     Active Substance: OCRELIZUMAB
     Indication: Product used for unknown indication
     Dosage: FIRST DOSE AND LAST DOSE ON 15/AUG/2022
     Route: 065
     Dates: start: 20190328

REACTIONS (2)
  - Bacterial infection [Unknown]
  - Endocarditis [Unknown]
